FAERS Safety Report 23675321 (Version 1)
Quarter: 2024Q1

REPORT INFORMATION
  Report Type: Spontaneous
  Country: US (occurrence: US)
  Receive Date: 20240327
  Receipt Date: 20240327
  Transmission Date: 20240410
  Serious: Yes (Hospitalization, Other)
  Sender: FDA-Public Use
  Company Number: US-AMGEN-USASP2024060568

PATIENT
  Age: 81 Year
  Sex: Female

DRUGS (1)
  1. BEVACIZUMAB [Suspect]
     Active Substance: BEVACIZUMAB
     Indication: Ovarian cancer metastatic
     Dosage: UNK
     Route: 065

REACTIONS (6)
  - Obstruction gastric [Unknown]
  - Large intestine perforation [Unknown]
  - Pelvic abscess [Unknown]
  - Cholelithiasis [Unknown]
  - Haemoglobin decreased [Unknown]
  - Biliary fistula [Unknown]
